FAERS Safety Report 9356403 (Version 1)
Quarter: 2013Q2

REPORT INFORMATION
  Report Type: Spontaneous
  Country: FR (occurrence: FR)
  Receive Date: 20130619
  Receipt Date: 20130619
  Transmission Date: 20140414
  Serious: Yes (Hospitalization)
  Sender: FDA-Public Use
  Company Number: FR-UCBSA-025956

PATIENT
  Age: 1 Hour
  Sex: Female
  Weight: 2.9 kg

DRUGS (4)
  1. KEPPRA [Suspect]
     Indication: EPILEPSY
     Route: 064
     Dates: start: 20091129, end: 20091207
  2. LAMICTAL [Suspect]
     Indication: EPILEPSY
     Dosage: 250 MG TO 400 MG
     Route: 064
     Dates: end: 20091207
  3. PANENZA [Concomitant]
  4. INSULIN [Concomitant]

REACTIONS (8)
  - Tremor [Recovered/Resolved]
  - Hypoglycaemia [Recovered/Resolved]
  - Premature baby [Unknown]
  - Agitation [Unknown]
  - Cyanosis [Unknown]
  - Pain in extremity [Unknown]
  - Oxygen saturation decreased [Unknown]
  - Foetal exposure during pregnancy [Recovered/Resolved]
